FAERS Safety Report 23907503 (Version 1)
Quarter: 2024Q2

REPORT INFORMATION
  Report Type: Spontaneous
  Country: US (occurrence: None)
  Receive Date: 20240522
  Receipt Date: 20240522
  Transmission Date: 20240716
  Serious: Yes (Other)
  Sender: FDA-Public Use
  Company Number: None

PATIENT
  Age: 44 Year
  Sex: Female
  Weight: 142.88 kg

DRUGS (1)
  1. MIRENA [Suspect]
     Active Substance: LEVONORGESTREL

REACTIONS (4)
  - Infusion site discomfort [None]
  - Pain [None]
  - Device dislocation [None]
  - Device dislocation [None]

NARRATIVE: CASE EVENT DATE: 20240429
